FAERS Safety Report 17173669 (Version 1)
Quarter: 2019Q4

REPORT INFORMATION
  Report Type: Spontaneous
  Country: US (occurrence: US)
  Receive Date: 20191219
  Receipt Date: 20191219
  Transmission Date: 20200122
  Serious: No
  Sender: FDA-Public Use
  Company Number: US-SUPERNUS PHARMACEUTICALS, INC.-2019SUP00424

PATIENT
  Sex: Female

DRUGS (2)
  1. OXTELLAR XR [Suspect]
     Active Substance: OXCARBAZEPINE
     Dosage: UNK
  2. UNSPECIFIED INTRAUTERINE CONTRACEPTION DEVICE [Suspect]
     Active Substance: INTRAUTERINE DEVICE
     Dosage: UNK

REACTIONS (1)
  - Vaginal haemorrhage [Unknown]
